FAERS Safety Report 14367944 (Version 1)
Quarter: 2018Q1

REPORT INFORMATION
  Report Type: Spontaneous
  Country: US (occurrence: US)
  Receive Date: 20180109
  Receipt Date: 20180109
  Transmission Date: 20180509
  Serious: Yes (Other)
  Sender: FDA-Public Use
  Company Number: US-ALLERGAN-1757822US

PATIENT
  Age: 35 Year
  Sex: Female

DRUGS (1)
  1. DALVANCE [Suspect]
     Active Substance: DALBAVANCIN
     Indication: SUBCUTANEOUS ABSCESS
     Dosage: 1500 MG, SINGLE
     Route: 042
     Dates: start: 20171007, end: 20171007

REACTIONS (4)
  - Eye pruritus [Recovering/Resolving]
  - Hypersensitivity [Recovering/Resolving]
  - Swelling face [Recovering/Resolving]
  - Pharyngeal oedema [Recovering/Resolving]

NARRATIVE: CASE EVENT DATE: 20171007
